FAERS Safety Report 20957151 (Version 2)
Quarter: 2022Q4

REPORT INFORMATION
  Report Type: Spontaneous
  Country: US (occurrence: US)
  Receive Date: 20220614
  Receipt Date: 20221117
  Transmission Date: 20230113
  Serious: No
  Sender: FDA-Public Use
  Company Number: US-PFIZER INC-PV202200000125

PATIENT
  Age: 56 Year
  Sex: Female

DRUGS (2)
  1. LIDOCAINE HYDROCHLORIDE [Suspect]
     Active Substance: LIDOCAINE HYDROCHLORIDE
     Dosage: UNK
  2. VITAMIN A AND D [Suspect]
     Active Substance: LANOLIN\PETROLATUM
     Dosage: UNK

REACTIONS (1)
  - Drug ineffective [Unknown]
